FAERS Safety Report 19939714 (Version 3)
Quarter: 2021Q4

REPORT INFORMATION
  Report Type: Spontaneous
  Country: US (occurrence: US)
  Receive Date: 20211012
  Receipt Date: 20211021
  Transmission Date: 20220303
  Serious: Yes (Other)
  Sender: FDA-Public Use
  Company Number: US-BEH-2021136865

PATIENT
  Age: 65 Year
  Sex: Male

DRUGS (2)
  1. PRIVIGEN [Suspect]
     Active Substance: HUMAN IMMUNOGLOBULIN G
     Indication: Polymyositis
     Dosage: 40 GRAM, QMT
     Route: 042
     Dates: start: 202105
  2. PRIVIGEN [Suspect]
     Active Substance: HUMAN IMMUNOGLOBULIN G
     Dosage: UNK
     Route: 042
     Dates: start: 20211007

REACTIONS (5)
  - Rash [Recovered/Resolved]
  - Flushing [Recovered/Resolved]
  - No adverse event [Unknown]
  - Off label use [Unknown]
  - Rash macular [Unknown]

NARRATIVE: CASE EVENT DATE: 20211007
